FAERS Safety Report 7382885-2 (Version None)
Quarter: 2011Q1

REPORT INFORMATION
  Report Type: 
  Country: None (occurrence: None)
  Receive Date: 20110330
  Receipt Date: 20110304
  Transmission Date: 20110831
  Serious: Yes (Hospitalization, Other)
  Sender: FDA-Public Use
  Company Number: US-BAYER-201039167NA

PATIENT
  Sex: Female
  Weight: 60.317 kg

DRUGS (4)
  1. YASMIN [Suspect]
     Indication: CONTRACEPTION
     Dosage: UNK UNK, QD
     Route: 048
     Dates: start: 20040601, end: 20041001
  2. PSEUDOVENT [Concomitant]
     Dosage: UNK
     Dates: start: 20041001
  3. CIPRO [Concomitant]
     Dosage: UNK
     Dates: start: 20040901
  4. ZITHROMAX [Concomitant]
     Dosage: UNK
     Dates: start: 20041001

REACTIONS (3)
  - DEEP VEIN THROMBOSIS [None]
  - PAIN IN EXTREMITY [None]
  - OEDEMA PERIPHERAL [None]
